FAERS Safety Report 18668635 (Version 7)
Quarter: 2021Q3

REPORT INFORMATION
  Report Type: Other
  Country: US (occurrence: US)
  Receive Date: 20201228
  Receipt Date: 20210806
  Transmission Date: 20211014
  Serious: Yes (Other)
  Sender: FDA-Public Use
  Company Number: US-ROCHE-2736872

PATIENT
  Sex: Male
  Weight: 90.8 kg

DRUGS (12)
  1. PREDNISONE. [Concomitant]
     Active Substance: PREDNISONE
  2. HUMALOG [Concomitant]
     Active Substance: INSULIN LISPRO
  3. PLAVIX [Concomitant]
     Active Substance: CLOPIDOGREL BISULFATE
  4. FUROSEMIDE. [Concomitant]
     Active Substance: FUROSEMIDE
  5. ACTEMRA [Suspect]
     Active Substance: TOCILIZUMAB
  6. ACTEMRA [Suspect]
     Active Substance: TOCILIZUMAB
  7. QUINAPRIL. [Concomitant]
     Active Substance: QUINAPRIL
  8. ACTEMRA [Suspect]
     Active Substance: TOCILIZUMAB
     Indication: GIANT CELL ARTERITIS
     Dosage: INJECT 162MG SUBCUTANEOUSLY EVERY OTHER WEEK
     Route: 058
  9. METOPROLOL. [Concomitant]
     Active Substance: METOPROLOL
  10. SIMVASTATIN. [Concomitant]
     Active Substance: SIMVASTATIN
  11. ACTEMRA [Suspect]
     Active Substance: TOCILIZUMAB
     Indication: DIABETES MELLITUS
  12. POTASSIUM CHLORIDE. [Concomitant]
     Active Substance: POTASSIUM CHLORIDE

REACTIONS (5)
  - Skin ulcer [Unknown]
  - Hypoacusis [Unknown]
  - Asthenia [Unknown]
  - Blindness unilateral [Unknown]
  - Memory impairment [Unknown]
